FAERS Safety Report 8534966-5 (Version None)
Quarter: 2012Q3

REPORT INFORMATION
  Report Type: 
  Country: None (occurrence: None)
  Receive Date: 20120724
  Receipt Date: 20120719
  Transmission Date: 20120928
  Serious: No
  Sender: FDA-Public Use
  Company Number: US-PFIZER INC-2012175547

PATIENT
  Sex: Female

DRUGS (2)
  1. LYRICA [Suspect]
     Indication: PAIN
     Dosage: UNK
     Dates: start: 20120301, end: 20120301
  2. LYRICA [Suspect]
     Indication: HERPES ZOSTER

REACTIONS (3)
  - FALL [None]
  - HEAD INJURY [None]
  - BALANCE DISORDER [None]
